FAERS Safety Report 19864629 (Version 1)
Quarter: 2021Q3

REPORT INFORMATION
  Report Type: Spontaneous
  Country: US (occurrence: US)
  Receive Date: 20210917
  Receipt Date: 20210917
  Transmission Date: 20211014
  Serious: Yes (Disabling, Other)
  Sender: FDA-Public Use
  Company Number: None

PATIENT
  Age: 60 Year
  Sex: Female

DRUGS (2)
  1. BANDAGE CONTACT LENS [Suspect]
     Active Substance: DEVICE
  2. POLYMYXIN B. [Suspect]
     Active Substance: POLYMYXIN B
     Indication: CORNEAL ABRASION
     Route: 031
     Dates: start: 20210315, end: 20210319

REACTIONS (4)
  - Crying [None]
  - Eye disorder [None]
  - Corneal abrasion [None]
  - Lacrimation increased [None]

NARRATIVE: CASE EVENT DATE: 20210315
